FAERS Safety Report 7231110-1 (Version None)
Quarter: 2011Q1

REPORT INFORMATION
  Report Type: 
  Country: None (occurrence: None)
  Receive Date: 20110118
  Receipt Date: 20110110
  Transmission Date: 20110831
  Serious: Yes (Other)
  Sender: FDA-Public Use
  Company Number: US-TEVA-263012USA

PATIENT
  Sex: Female

DRUGS (6)
  1. ATORVASTATIN CALCIUM [Concomitant]
     Dates: start: 20020115
  2. CELECOXIB [Concomitant]
     Dates: start: 20000822, end: 20041019
  3. METHOTREXATE SOLUTION FOR INJECTION, 25 MG/ML [Suspect]
     Dates: start: 20001128, end: 20041226
  4. FOLIC ACID [Concomitant]
     Dates: start: 20000101, end: 20041226
  5. LISINOPRIL [Concomitant]
     Dates: start: 20020115
  6. ETANERCEPT [Suspect]
     Indication: PSORIATIC ARTHROPATHY
     Route: 058
     Dates: start: 20030109, end: 20030801

REACTIONS (2)
  - CORONARY ARTERY DISEASE [None]
  - INFECTION [None]
